FAERS Safety Report 24638308 (Version 1)
Quarter: 2024Q4

REPORT INFORMATION
  Report Type: Spontaneous
  Country: CA (occurrence: CA)
  Receive Date: 20241119
  Receipt Date: 20241119
  Transmission Date: 20250115
  Serious: Yes (Other)
  Sender: TEVA
  Company Number: CA-TEVA-VS-3264334

PATIENT
  Sex: Female

DRUGS (1)
  1. TAMOXIFEN CITRATE [Suspect]
     Active Substance: TAMOXIFEN CITRATE
     Indication: Breast cancer female
     Route: 048

REACTIONS (6)
  - Hepatitis [Unknown]
  - Back pain [Unknown]
  - Hot flush [Unknown]
  - Abdominal pain upper [Unknown]
  - Feeding disorder [Unknown]
  - Pancreatitis [Unknown]
